FAERS Safety Report 17742628 (Version 1)
Quarter: 2020Q2

REPORT INFORMATION
  Report Type: Spontaneous
  Country: US (occurrence: US)
  Receive Date: 20200504
  Receipt Date: 20200504
  Transmission Date: 20200714
  Serious: No
  Sender: FDA-Public Use
  Company Number: US-GILEAD-2020-0461170

PATIENT
  Age: 56 Year
  Sex: Female

DRUGS (4)
  1. RANEXA [Suspect]
     Active Substance: RANOLAZINE
     Dosage: 500 MG, BID
     Route: 065
     Dates: start: 20200416
  2. RANEXA [Suspect]
     Active Substance: RANOLAZINE
     Dosage: 500 MG, QD
     Route: 065
     Dates: start: 20200418
  3. RANEXA [Suspect]
     Active Substance: RANOLAZINE
     Indication: PRODUCT USED FOR UNKNOWN INDICATION
     Dosage: 500 MG, BID
     Route: 065
     Dates: start: 2016
  4. RANEXA [Suspect]
     Active Substance: RANOLAZINE
     Dosage: 500 MG, QD
     Route: 065
     Dates: start: 2016

REACTIONS (3)
  - Renal impairment [Unknown]
  - Arrhythmia [Unknown]
  - Chest discomfort [Unknown]
